FAERS Safety Report 5211678-7 (Version None)
Quarter: 2007Q1

REPORT INFORMATION
  Report Type: 
  Country: None (occurrence: None)
  Receive Date: 20070117
  Receipt Date: 20070117
  Transmission Date: 20070707
  Serious: Yes (Hospitalization)
  Sender: FDA-Public Use
  Company Number: None

PATIENT
  Age: 53 Year
  Sex: Female
  Weight: 80.2867 kg

DRUGS (1)
  1. POTASSIUM EFFERVESCENT     25 MEQ     WATSON [Suspect]
     Indication: BLOOD POTASSIUM DECREASED
     Dosage: ONE A DAY   PO
     Route: 048
     Dates: start: 20050703, end: 20050811

REACTIONS (5)
  - CHEST DISCOMFORT [None]
  - GASTRITIS [None]
  - GASTROINTESTINAL HAEMORRHAGE [None]
  - MEDICATION ERROR [None]
  - NAUSEA [None]
